FAERS Safety Report 5027725-1 (Version None)
Quarter: 2006Q2

REPORT INFORMATION
  Report Type: 
  Country: None (occurrence: None)
  Receive Date: 20060428
  Receipt Date: 20060120
  Transmission Date: 20061013
  Serious: No
  Sender: FDA-Public Use
  Company Number: COT_0427_2006

PATIENT
  Age: 40 Year
  Sex: Female
  Weight: 61.6892 kg

DRUGS (11)
  1. VENTAVIS [Suspect]
     Indication: PULMONARY HYPERTENSION
     Dosage: 2.5 MCG ONCE IH
     Route: 055
     Dates: start: 20051229, end: 20051229
  2. VENTAVIS [Suspect]
     Indication: PULMONARY HYPERTENSION
     Dosage: 5 MCG 6TO9X/DAY IH
     Route: 055
     Dates: start: 20051229, end: 20060130
  3. VENTAVIS [Suspect]
     Indication: PULMONARY HYPERTENSION
     Dosage: 2.5 MCG 6XD IH
     Route: 055
     Dates: start: 20060131
  4. NEXIUM [Concomitant]
  5. TRACLEER [Concomitant]
  6. MEGESTROL [Concomitant]
  7. ZELNORM [Concomitant]
  8. METOCLOPRAMIDE [Concomitant]
  9. SILDENAFIL [Concomitant]
  10. SPIRONOLACTONE [Concomitant]
  11. CLARINEX [Concomitant]

REACTIONS (4)
  - COUGH [None]
  - FLUSHING [None]
  - HEADACHE [None]
  - PHARYNGOLARYNGEAL PAIN [None]
